FAERS Safety Report 9008147 (Version 1)
Quarter: 2013Q1

REPORT INFORMATION
  Report Type: Spontaneous
  Country: US (occurrence: US)
  Receive Date: 20130111
  Receipt Date: 20130111
  Transmission Date: 20140127
  Serious: Yes (Other)
  Sender: FDA-Public Use
  Company Number: US-009507513-1012USA00476

PATIENT
  Age: 5 Year
  Sex: Female
  Weight: 19.51 kg

DRUGS (2)
  1. SINGULAIR [Suspect]
     Indication: ASTHMA
     Dosage: 4 MG, QD
     Route: 048
     Dates: start: 20060104, end: 20080630
  2. SINGULAIR [Suspect]
     Dosage: 4 MG, QD
     Route: 048
     Dates: start: 20091001, end: 20100113

REACTIONS (4)
  - Abnormal behaviour [Unknown]
  - Screaming [Unknown]
  - Psychomotor hyperactivity [Unknown]
  - Aggression [Unknown]
